FAERS Safety Report 8819026 (Version 1)
Quarter: 2012Q4

REPORT INFORMATION
  Report Type: Report from Study
  Country: CA (occurrence: CA)
  Receive Date: 20121001
  Receipt Date: 20121001
  Transmission Date: 20130627
  Serious: Yes (Hospitalization)
  Sender: FDA-Public Use
  Company Number: CA-JNJFOC-20120910306

PATIENT
  Age: 29 Year
  Sex: Female
  Weight: 63.5 kg

DRUGS (5)
  1. REMICADE [Suspect]
     Indication: COLITIS ULCERATIVE
     Route: 042
  2. MEZAVANT [Concomitant]
     Route: 048
  3. PREDNISONE [Concomitant]
     Route: 048
  4. MOXIFLOXACIN [Concomitant]
     Route: 048
  5. FLAGYL [Concomitant]
     Route: 048

REACTIONS (1)
  - Erythema nodosum [Not Recovered/Not Resolved]
